FAERS Safety Report 7815864-9 (Version None)
Quarter: 2011Q4

REPORT INFORMATION
  Report Type: 
  Country: None (occurrence: None)
  Receive Date: 20111014
  Receipt Date: 20110901
  Transmission Date: 20120403
  Serious: Yes (Hospitalization)
  Sender: FDA-Public Use
  Company Number: US-AMGEN-USACT2011028822

PATIENT
  Age: 66 Year
  Sex: Female

DRUGS (14)
  1. COREG [Concomitant]
     Dosage: 3.125 MG, BID
     Route: 048
  2. PRAVACHOL [Concomitant]
     Dosage: 40 MG, UNK
     Route: 048
  3. SPIRIVA [Concomitant]
     Dosage: 18 MUG, UNK
     Route: 048
  4. TYLENOL-500 [Concomitant]
  5. IRON [Concomitant]
     Dosage: 325 MG, QD
     Route: 048
  6. NEXIUM [Concomitant]
     Dosage: 40 MG, QD
     Route: 048
  7. BLINDED DARBEPOETIN ALFA [Suspect]
     Indication: CARDIAC FAILURE
     Dates: start: 20101103, end: 20110209
  8. BLINDED PLACEBO [Suspect]
     Indication: CARDIAC FAILURE
     Dates: start: 20101103, end: 20110209
  9. ASPIRIN [Concomitant]
     Dosage: 325 MG, QD
     Route: 048
  10. VITAMIN B-12 [Concomitant]
     Dosage: 1000 MUG, QD
     Route: 048
  11. PRINIVIL [Concomitant]
     Dosage: 2.5 MG, UNK
     Route: 048
  12. LASIX [Concomitant]
     Dosage: 40 MG, QD
     Route: 048
  13. XOPENEX HFA [Concomitant]
     Dosage: UNK UNK, QID
  14. ALDACTONE [Concomitant]
     Dosage: 25 MG, QOD
     Route: 048

REACTIONS (6)
  - DEHYDRATION [None]
  - NAUSEA [None]
  - ABDOMINAL PAIN [None]
  - METASTASES TO LIVER [None]
  - COLON CANCER METASTATIC [None]
  - VOMITING [None]
